FAERS Safety Report 4921387-7 (Version None)
Quarter: 2006Q1

REPORT INFORMATION
  Report Type: 
  Country: None (occurrence: None)
  Receive Date: 20060224
  Receipt Date: 20060216
  Transmission Date: 20060701
  Serious: Yes (Other)
  Sender: FDA-Public Use
  Company Number: 2006UW02901

PATIENT
  Age: 17323 Day
  Sex: Male

DRUGS (4)
  1. IRESSA [Suspect]
     Indication: NON-SMALL CELL LUNG CANCER METASTATIC
     Route: 048
     Dates: start: 20060126, end: 20060215
  2. PROCHLORPERAZINE [Concomitant]
  3. TYLENOL W/ CODEINE NO. 3 [Concomitant]
     Indication: PAIN
     Dosage: 1-2 TABLETS PO PRN
     Route: 048
     Dates: start: 20051214
  4. HYCODAN [Concomitant]
     Indication: COUGH
     Route: 048
     Dates: start: 20051214

REACTIONS (1)
  - THROMBOCYTOPENIA [None]
